FAERS Safety Report 6157528-6 (Version None)
Quarter: 2009Q2

REPORT INFORMATION
  Report Type: 
  Country: None (occurrence: None)
  Receive Date: 20090416
  Receipt Date: 20090404
  Transmission Date: 20091009
  Serious: Yes (Other)
  Sender: FDA-Public Use
  Company Number: NL-PFIZER INC-2009198171

PATIENT

DRUGS (1)
  1. CHAMPIX [Suspect]
     Indication: SMOKING CESSATION THERAPY
     Dosage: UNIT DOSE: DOSE SCHEDULE;
     Route: 048

REACTIONS (2)
  - LOSS OF CONTROL OF LEGS [None]
  - PALPITATIONS [None]
